FAERS Safety Report 11009577 (Version 1)
Quarter: 2015Q2

REPORT INFORMATION
  Report Type: Report from Study
  Country: US (occurrence: US)
  Receive Date: 20150410
  Receipt Date: 20150410
  Transmission Date: 20150821
  Serious: Yes (Death, Other)
  Sender: FDA-Public Use
  Company Number: US-ASTELLAS-2015US011006

PATIENT
  Sex: Female

DRUGS (7)
  1. AVASTIN [Suspect]
     Active Substance: BEVACIZUMAB
     Indication: LUNG NEOPLASM MALIGNANT
     Route: 042
     Dates: start: 20050613
  2. AVASTIN [Suspect]
     Active Substance: BEVACIZUMAB
     Indication: RENAL CANCER
  3. DECADRON [Concomitant]
     Active Substance: DEXAMETHASONE
     Indication: PRODUCT USED FOR UNKNOWN INDICATION
     Dosage: UNK UNK, UNKNOWN FREQ.
     Route: 065
  4. LUNESTA [Concomitant]
     Active Substance: ESZOPICLONE
     Indication: PRODUCT USED FOR UNKNOWN INDICATION
     Dosage: UNK UNK, UNKNOWN FREQ.
     Route: 065
  5. TEMAZEPAM. [Concomitant]
     Active Substance: TEMAZEPAM
     Indication: PRODUCT USED FOR UNKNOWN INDICATION
     Dosage: UNK UNK, UNKNOWN FREQ.
     Route: 065
  6. ERLOTINIB [Suspect]
     Active Substance: ERLOTINIB
     Indication: PRODUCT USED FOR UNKNOWN INDICATION
     Route: 048
  7. ACYCLOVIR                          /00587301/ [Concomitant]
     Active Substance: ACYCLOVIR
     Indication: PRODUCT USED FOR UNKNOWN INDICATION
     Route: 065

REACTIONS (24)
  - Vasogenic cerebral oedema [Unknown]
  - Lymphocytosis [Unknown]
  - Dizziness [Unknown]
  - Malignant neoplasm progression [Unknown]
  - Contusion [Unknown]
  - Balance disorder [Unknown]
  - Visual acuity reduced [Unknown]
  - Disturbance in attention [Unknown]
  - Haematoma [Unknown]
  - Off label use [Unknown]
  - Muscular weakness [Unknown]
  - Cough [Unknown]
  - Brain oedema [Unknown]
  - Constipation [Unknown]
  - Dyspnoea [Unknown]
  - Death [Fatal]
  - Poor quality sleep [Unknown]
  - Petechiae [Unknown]
  - Nasal ulcer [Unknown]
  - Visual impairment [Unknown]
  - Back pain [Unknown]
  - Bone pain [Unknown]
  - Asthenia [Unknown]
  - Chest pain [Unknown]
